FAERS Safety Report 25308416 (Version 6)
Quarter: 2025Q3

REPORT INFORMATION
  Report Type: Spontaneous
  Country: US (occurrence: US)
  Receive Date: 20250513
  Receipt Date: 20250805
  Transmission Date: 20251020
  Serious: No
  Sender: SANOFI AVENTIS
  Company Number: US-SA-2025SA124992

PATIENT
  Age: 57 Year
  Sex: Female

DRUGS (2)
  1. DUPIXENT [Suspect]
     Active Substance: DUPILUMAB
     Indication: Dermatitis atopic
     Route: 058
     Dates: start: 20250420, end: 20250420
  2. DUPIXENT [Suspect]
     Active Substance: DUPILUMAB
     Indication: Eczema
     Dosage: 300 MG, QOW
     Route: 058
     Dates: start: 202505

REACTIONS (12)
  - Injection site haemorrhage [Unknown]
  - Injection site urticaria [Unknown]
  - Injection site discomfort [Unknown]
  - Paraesthesia [Unknown]
  - Eyelid skin dryness [Recovering/Resolving]
  - Swelling of eyelid [Recovering/Resolving]
  - Skin exfoliation [Unknown]
  - Condition aggravated [Unknown]
  - Injection site rash [Unknown]
  - Injection site pain [Unknown]
  - Injection site erythema [Unknown]
  - Product storage error [Unknown]

NARRATIVE: CASE EVENT DATE: 20250101
